FAERS Safety Report 8354582-8 (Version None)
Quarter: 2012Q2

REPORT INFORMATION
  Report Type: 
  Country: None (occurrence: None)
  Receive Date: 20120511
  Receipt Date: 20110311
  Transmission Date: 20120825
  Serious: No
  Sender: FDA-Public Use
  Company Number: US-TEVA-2011000959

PATIENT
  Sex: Female
  Weight: 53.572 kg

DRUGS (9)
  1. GABAPENTIN [Concomitant]
     Dates: start: 20010101
  2. NUVIGIL [Suspect]
     Indication: FATIGUE
     Dosage: 150 MILLIGRAM;
     Route: 048
     Dates: start: 20110227
  3. OPANA [Concomitant]
     Dates: start: 20090101
  4. NASONEX [Concomitant]
  5. CRESTOR [Concomitant]
     Dates: start: 20090101
  6. HYDREA [Concomitant]
     Dates: start: 19960101
  7. SPIRIVA [Concomitant]
     Dates: start: 20110101
  8. ADVAIR DISKUS 100/50 [Concomitant]
     Dates: start: 20060101
  9. ASPIRIN [Concomitant]
     Dates: start: 20010101

REACTIONS (3)
  - AGITATION [None]
  - INSOMNIA [None]
  - FATIGUE [None]
